FAERS Safety Report 6199265-8 (Version None)
Quarter: 2009Q2

REPORT INFORMATION
  Report Type: 
  Country: None (occurrence: None)
  Receive Date: 20090522
  Receipt Date: 20090513
  Transmission Date: 20091009
  Serious: Yes (Other)
  Sender: FDA-Public Use
  Company Number: CA-JNJFOC-20090103379

PATIENT
  Sex: Female
  Weight: 83 kg

DRUGS (8)
  1. REMICADE [Suspect]
     Route: 042
  2. REMICADE [Suspect]
     Dosage: RECEIVED 14 DOSES (DOSE STRENGTH 100MG/VIAL)
     Route: 042
  3. REMICADE [Suspect]
     Indication: RHEUMATOID ARTHRITIS
     Route: 042
  4. METHOTREXATE [Concomitant]
  5. DIOVAN [Concomitant]
  6. SYNTHROID [Concomitant]
  7. FOLIC ACID [Concomitant]
  8. NAPROXEN [Concomitant]

REACTIONS (2)
  - ASTHMA [None]
  - BRONCHOPNEUMONIA [None]
